FAERS Safety Report 13167343 (Version 1)
Quarter: 2017Q1

REPORT INFORMATION
  Report Type: Spontaneous
  Country: US (occurrence: US)
  Receive Date: 20170130
  Receipt Date: 20170130
  Transmission Date: 20170428
  Serious: Yes (Other)
  Sender: FDA-Public Use
  Company Number: None

PATIENT
  Age: 66 Year
  Sex: Female
  Weight: 95.85 kg

DRUGS (7)
  1. CIPROFLOXACIN HCL 250 MG TAB [Suspect]
     Active Substance: BENZYL ALCOHOL\CIPROFLOXACIN HYDROCHLORIDE\HYDROCORTISONE
     Indication: SINUSITIS
     Dosage: ?          QUANTITY:1 CAPSULE(S);?
     Route: 048
     Dates: start: 20170107, end: 20170109
  2. VICKS VAPORUB [Concomitant]
     Active Substance: CAMPHOR (SYNTHETIC)\EUCALYPTUS OIL\MENTHOL
  3. GLIPIZIDE. [Concomitant]
     Active Substance: GLIPIZIDE
  4. ACETAMINOPHEN. [Concomitant]
     Active Substance: ACETAMINOPHEN
  5. LISINOPRIL. [Concomitant]
     Active Substance: LISINOPRIL
  6. FLUOXETINE [Concomitant]
     Active Substance: FLUOXETINE HYDROCHLORIDE
  7. EQUATE [Concomitant]
     Active Substance: UNSPECIFIED INGREDIENT

REACTIONS (13)
  - Impaired work ability [None]
  - Musculoskeletal stiffness [None]
  - Impaired driving ability [None]
  - Ligament disorder [None]
  - Activities of daily living impaired [None]
  - Decreased activity [None]
  - Therapy cessation [None]
  - Poor quality sleep [None]
  - Fatigue [None]
  - Extrasystoles [None]
  - Protein urine present [None]
  - Myalgia [None]
  - Tendon disorder [None]

NARRATIVE: CASE EVENT DATE: 20170107
